FAERS Safety Report 6112043-0 (Version None)
Quarter: 2009Q1

REPORT INFORMATION
  Report Type: 
  Country: None (occurrence: None)
  Receive Date: 20090311
  Receipt Date: 20090227
  Transmission Date: 20090719
  Serious: Yes (Other)
  Sender: FDA-Public Use
  Company Number: US-PFIZER INC-2009177184

PATIENT
  Sex: Female
  Weight: 66.667 kg

DRUGS (3)
  1. LYRICA [Suspect]
     Indication: FIBROMYALGIA
     Dosage: UNK
     Dates: start: 20090219, end: 20090221
  2. LAMICTAL [Concomitant]
     Indication: CONVULSION
     Dosage: UNK
  3. FLEXERIL [Concomitant]
     Dosage: UNK

REACTIONS (4)
  - CIRCUMSTANCE OR INFORMATION CAPABLE OF LEADING TO MEDICATION ERROR [None]
  - HYPOAESTHESIA [None]
  - INSOMNIA [None]
  - PARALYSIS [None]
